FAERS Safety Report 24136149 (Version 1)
Quarter: 2024Q3

REPORT INFORMATION
  Report Type: Report from Study
  Country: US (occurrence: None)
  Receive Date: 20240725
  Receipt Date: 20240725
  Transmission Date: 20241017
  Serious: Yes (Other)
  Sender: ASTRAZENECA
  Company Number: 2024A163691

PATIENT
  Sex: Female

DRUGS (1)
  1. CALQUENCE [Suspect]
     Active Substance: ACALABRUTINIB
     Indication: B-cell small lymphocytic lymphoma
     Route: 048
     Dates: start: 202211

REACTIONS (5)
  - Dementia Alzheimer^s type [Unknown]
  - Depression [Unknown]
  - Anaemia [Unknown]
  - Back pain [Unknown]
  - Product dose omission issue [Unknown]
